FAERS Safety Report 9376887 (Version 8)
Quarter: 2014Q2

REPORT INFORMATION
  Report Type: Report from Study
  Country: US (occurrence: US)
  Receive Date: 20130701
  Receipt Date: 20140423
  Transmission Date: 20141212
  Serious: Yes (Other)
  Sender: FDA-Public Use
  Company Number: US-JNJFOC-20130611953

PATIENT
  Age: 59 Year
  Sex: Male
  Weight: 165.56 kg

DRUGS (36)
  1. REMICADE [Suspect]
     Indication: PSORIATIC ARTHROPATHY
     Route: 042
     Dates: start: 20110607, end: 20130626
  2. REMICADE [Suspect]
     Indication: PSORIATIC ARTHROPATHY
     Route: 042
     Dates: start: 201105
  3. REMICADE [Suspect]
     Indication: PSORIATIC ARTHROPATHY
     Route: 042
     Dates: start: 2012
  4. REMICADE [Suspect]
     Indication: PSORIATIC ARTHROPATHY
     Route: 042
     Dates: start: 20130517
  5. REMICADE [Suspect]
     Indication: PSORIATIC ARTHROPATHY
     Route: 042
     Dates: start: 201305
  6. REMICADE [Suspect]
     Indication: PSORIATIC ARTHROPATHY
     Dosage: PATIENT RECEIVED 20 TOTAL NUMBER OF INFUSIONS
     Route: 042
     Dates: start: 20110602
  7. METHYLPREDNISOLONE [Concomitant]
     Indication: PAIN
     Route: 065
     Dates: start: 20130517
  8. METHYLPREDNISOLONE [Concomitant]
     Indication: PAIN
     Route: 065
     Dates: start: 201208, end: 20130518
  9. METHYLPREDNISOLONE [Concomitant]
     Indication: PAIN
     Route: 065
     Dates: start: 20130626
  10. METHYLPREDNISOLONE [Concomitant]
     Indication: INFLAMMATION
     Route: 065
     Dates: start: 20130626
  11. METHYLPREDNISOLONE [Concomitant]
     Indication: INFLAMMATION
     Route: 065
     Dates: start: 20130517
  12. METHYLPREDNISOLONE [Concomitant]
     Indication: INFLAMMATION
     Route: 065
     Dates: start: 201208, end: 20130518
  13. MUPIROCIN [Concomitant]
     Indication: LOCALISED INFECTION
     Route: 065
     Dates: start: 20130613
  14. METHOTREXATE [Concomitant]
     Indication: PSORIATIC ARTHROPATHY
     Route: 048
     Dates: start: 2011
  15. METHOTREXATE [Concomitant]
     Indication: PSORIATIC ARTHROPATHY
     Route: 048
     Dates: start: 201105
  16. METHOTREXATE [Concomitant]
     Indication: PSORIATIC ARTHROPATHY
     Route: 048
     Dates: start: 20110328
  17. KLOR-CON [Concomitant]
     Indication: MUSCLE SPASMS
     Route: 048
     Dates: start: 2010
  18. KLOR-CON [Concomitant]
     Indication: MUSCLE SPASMS
     Dosage: 60MEQ /TABLET20MG/3 IN??AM/ORAL??40MG/TABLET/20MG/2 IN PM??/ORAL
     Route: 048
     Dates: start: 201105
  19. KLOR-CON [Concomitant]
     Indication: BLOOD POTASSIUM DECREASED
     Route: 048
     Dates: start: 2010
  20. KLOR-CON [Concomitant]
     Indication: BLOOD POTASSIUM DECREASED
     Dosage: 60MEQ /TABLET20MG/3 IN??AM/ORAL??40MG/TABLET/20MG/2 IN PM??/ORAL
     Route: 048
     Dates: start: 201105
  21. KLOR-CON [Concomitant]
     Indication: ELECTROLYTE SUBSTITUTION THERAPY
     Route: 048
     Dates: start: 2010
  22. KLOR-CON [Concomitant]
     Indication: ELECTROLYTE SUBSTITUTION THERAPY
     Dosage: 60MEQ /TABLET20MG/3 IN??AM/ORAL??40MG/TABLET/20MG/2 IN PM??/ORAL
     Route: 048
     Dates: start: 201105
  23. FOLIC ACID [Concomitant]
     Indication: PSORIATIC ARTHROPATHY
     Route: 048
     Dates: start: 201105
  24. PREDNISONE [Concomitant]
     Indication: LOCALISED INFECTION
     Route: 048
     Dates: start: 20130424
  25. PREDNISONE [Concomitant]
     Indication: INFLAMMATION
     Route: 048
     Dates: start: 20130424
  26. TRAMADOL [Concomitant]
     Indication: LOCALISED INFECTION
     Route: 048
     Dates: start: 20130613
  27. TRAMADOL [Concomitant]
     Indication: PAIN
     Route: 048
     Dates: start: 20130613
  28. MINOCYCLINE [Concomitant]
     Indication: LOCALISED INFECTION
     Route: 048
     Dates: start: 20130613, end: 20130622
  29. MINOCYCLINE [Concomitant]
     Indication: INFLAMMATION
     Route: 048
     Dates: start: 20130613, end: 20130622
  30. TRIAMCINOLONE [Concomitant]
     Indication: LOCALISED INFECTION
     Route: 065
     Dates: start: 20130613
  31. SOLU MEDROL [Concomitant]
     Indication: PREMEDICATION
     Route: 042
     Dates: start: 20130517, end: 20130626
  32. PEPCID [Concomitant]
     Indication: PREMEDICATION
     Route: 042
     Dates: start: 20130517, end: 20130626
  33. ZOFRAN [Concomitant]
     Indication: PREMEDICATION
     Route: 042
     Dates: start: 20130517, end: 20130626
  34. BENADRYL [Concomitant]
     Indication: PREMEDICATION
     Route: 042
     Dates: start: 20130626
  35. BENADRYL [Concomitant]
     Indication: PREMEDICATION
     Route: 042
     Dates: start: 20130517
  36. BENADRYL [Concomitant]
     Indication: PREMEDICATION
     Route: 042
     Dates: start: 2013, end: 20130626

REACTIONS (21)
  - Inflammation [Not Recovered/Not Resolved]
  - Venous haemorrhage [Not Recovered/Not Resolved]
  - Vein disorder [Not Recovered/Not Resolved]
  - Infusion related reaction [Recovered/Resolved]
  - Dyspnoea [Recovered/Resolved]
  - Confusional state [Not Recovered/Not Resolved]
  - Chest discomfort [Recovered/Resolved]
  - Erythema [Recovered/Resolved]
  - Adverse event [Unknown]
  - Bronchospasm [Recovered/Resolved]
  - Oropharyngeal pain [Recovered/Resolved]
  - Rash [Recovered/Resolved]
  - Dyspnoea [Recovered/Resolved]
  - Skin ulcer [Not Recovered/Not Resolved]
  - Drug ineffective [Recovered/Resolved]
  - Hypoaesthesia [Unknown]
  - Arthralgia [Recovered/Resolved]
  - Nausea [Recovered/Resolved]
  - Feeling hot [Recovered/Resolved]
  - Malaise [Recovered/Resolved]
  - Hypersensitivity [Recovered/Resolved]
